FAERS Safety Report 18672774 (Version 1)
Quarter: 2020Q4

REPORT INFORMATION
  Report Type: Spontaneous
  Country: US (occurrence: US)
  Receive Date: 20201229
  Receipt Date: 20201229
  Transmission Date: 20210114
  Serious: Yes (Death)
  Sender: FDA-Public Use
  Company Number: US-GW PHARMA-202012USGW04455

PATIENT

DRUGS (3)
  1. FLUPHENAZINE [Concomitant]
     Active Substance: FLUPHENAZINE
     Indication: PRODUCT USED FOR UNKNOWN INDICATION
     Dosage: UNK
     Route: 065
  2. EPIDIOLEX [Suspect]
     Active Substance: CANNABIDIOL
     Indication: PARTIAL SEIZURES
     Dosage: 375 MILLIGRAM, BID
     Route: 048
     Dates: start: 20191105, end: 2020
  3. EPIDIOLEX [Suspect]
     Active Substance: CANNABIDIOL
     Indication: EPILEPSY

REACTIONS (1)
  - Neurodegenerative disorder [Fatal]

NARRATIVE: CASE EVENT DATE: 2020
